FAERS Safety Report 9203633 (Version 1)
Quarter: 2013Q2

REPORT INFORMATION
  Report Type: Spontaneous
  Country: US (occurrence: US)
  Receive Date: 20130402
  Receipt Date: 20130402
  Transmission Date: 20140414
  Serious: No
  Sender: FDA-Public Use
  Company Number: US-BAYER-2013-039525

PATIENT
  Sex: Female
  Weight: 55.33 kg

DRUGS (6)
  1. BETASERON [Suspect]
     Indication: MULTIPLE SCLEROSIS
  2. GABAPENTIN [Concomitant]
  3. AVONEX [Concomitant]
  4. VENLAFAXINE [Concomitant]
  5. QUETIAPINE [Concomitant]
     Dosage: UNK
  6. TYSABRI [Suspect]
     Dosage: UNK
     Dates: start: 2011, end: 2013

REACTIONS (3)
  - Fatigue [None]
  - Asthenia [None]
  - Drug ineffective [None]
